FAERS Safety Report 12487568 (Version 1)
Quarter: 2016Q2

REPORT INFORMATION
  Report Type: Spontaneous
  Country: US (occurrence: None)
  Receive Date: 20160621
  Receipt Date: 20160621
  Transmission Date: 20160815
  Serious: No
  Sender: FDA-Public Use
  Company Number: None

PATIENT
  Age: 54 Year
  Sex: Female

DRUGS (1)
  1. BENAZEPRIL, 20MG SOLCO [Suspect]
     Active Substance: BENAZEPRIL HYDROCHLORIDE
     Indication: BLOOD PRESSURE MEASUREMENT
     Route: 048
     Dates: start: 20160504, end: 20160620

REACTIONS (6)
  - Headache [None]
  - Drug ineffective [None]
  - Chest discomfort [None]
  - Hypertension [None]
  - Nervousness [None]
  - Feeling drunk [None]

NARRATIVE: CASE EVENT DATE: 20160620
